FAERS Safety Report 4419523-4 (Version None)
Quarter: 2004Q3

REPORT INFORMATION
  Report Type: 
  Country: None (occurrence: None)
  Receive Date: 20040809
  Receipt Date: 20040130
  Transmission Date: 20050211
  Serious: No
  Sender: FDA-Public Use
  Company Number: US-GLAXOSMITHKLINE-A0497415A

PATIENT
  Sex: Female

DRUGS (3)
  1. PAROXETINE HYDROCHLORIDE [Suspect]
     Indication: ILL-DEFINED DISORDER
  2. PAXIL [Concomitant]
     Indication: ILL-DEFINED DISORDER
     Dosage: 20MG PER DAY
     Dates: start: 20030501
  3. PROZAC [Concomitant]
     Indication: ILL-DEFINED DISORDER
     Dates: start: 19940101

REACTIONS (1)
  - DRUG WITHDRAWAL SYNDROME [None]
